FAERS Safety Report 6171350-6 (Version None)
Quarter: 2009Q2

REPORT INFORMATION
  Report Type: 
  Country: None (occurrence: None)
  Receive Date: 20090429
  Receipt Date: 20090427
  Transmission Date: 20091009
  Serious: Yes (Other)
  Sender: FDA-Public Use
  Company Number: FR-BRISTOL-MYERS SQUIBB COMPANY-14603435

PATIENT
  Age: 36 Year
  Sex: Male

DRUGS (2)
  1. SUSTIVA [Suspect]
     Indication: HIV INFECTION
     Dates: start: 20090301
  2. TRUVADA [Suspect]
     Indication: HIV INFECTION
     Dates: start: 20090301

REACTIONS (1)
  - OSTEONECROSIS [None]
